FAERS Safety Report 8960484 (Version 1)
Quarter: 2012Q4

REPORT INFORMATION
  Report Type: Spontaneous
  Country: US (occurrence: None)
  Receive Date: 20121207
  Receipt Date: 20121207
  Transmission Date: 20130627
  Serious: Yes (Life-Threatening, Disabling)
  Sender: FDA-Public Use
  Company Number: None

PATIENT
  Age: 20 Year
  Sex: Female
  Weight: 72.58 kg

DRUGS (1)
  1. MIRENA IUD [Suspect]
     Indication: BIRTH CONTROL
     Dates: start: 20090317, end: 20110519

REACTIONS (7)
  - Pelvic pain [None]
  - Dyspareunia [None]
  - Device dislocation [None]
  - Haemorrhage [None]
  - Procedural pain [None]
  - Polycystic ovaries [None]
  - Scar [None]
